FAERS Safety Report 15195747 (Version 1)
Quarter: 2018Q3

REPORT INFORMATION
  Report Type: Spontaneous
  Country: FR (occurrence: FR)
  Receive Date: 20180725
  Receipt Date: 20180725
  Transmission Date: 20181010
  Serious: Yes (Other)
  Sender: FDA-Public Use
  Company Number: FR-PFIZER INC-2018292912

PATIENT
  Age: 47 Year
  Sex: Male
  Weight: 85 kg

DRUGS (6)
  1. EZETROL [Suspect]
     Active Substance: EZETIMIBE
     Indication: DYSLIPIDAEMIA
     Dosage: 10 MG, 1X/DAY
     Route: 048
  2. NEO?MERCAZOLE [Suspect]
     Active Substance: CARBIMAZOLE
     Indication: BASEDOW^S DISEASE
     Dosage: 20 MG, 1X/DAY
     Route: 048
  3. LEVOTHYROX [Suspect]
     Active Substance: LEVOTHYROXINE
     Indication: BASEDOW^S DISEASE
     Dosage: 100 UG, 1X/DAY
     Route: 048
  4. AMLODIPINE [Suspect]
     Active Substance: AMLODIPINE BESYLATE
     Indication: HYPERTENSION
     Dosage: 10 MG, 1X/DAY
     Route: 048
  5. MONOPROST [Suspect]
     Active Substance: LATANOPROST
     Indication: OCULAR HYPERTENSION
     Dosage: 1 GTT, 1X/DAY
     Route: 047
  6. VITAMINE A DULCIS [Suspect]
     Active Substance: RETINOL
     Indication: PUNCTATE KERATITIS
     Dosage: 1 DF, 1X/DAY
     Route: 047

REACTIONS (1)
  - Hepatocellular injury [Not Recovered/Not Resolved]

NARRATIVE: CASE EVENT DATE: 20171222
